FAERS Safety Report 4526516-5 (Version None)
Quarter: 2004Q4

REPORT INFORMATION
  Report Type: 
  Country: None (occurrence: None)
  Receive Date: 20041210
  Receipt Date: 20041201
  Transmission Date: 20050328
  Serious: Yes (Death, Hospitalization, Other)
  Sender: FDA-Public Use
  Company Number: 2004-11-1063

PATIENT
  Age: 63 Year
  Sex: Female
  Weight: 97.0698 kg

DRUGS (14)
  1. TEMODAR [Suspect]
     Indication: GLIOBLASTOMA MULTIFORME
     Dosage: 75MG/M2 QD ORAL
     Route: 048
     Dates: start: 20040712, end: 20040902
  2. RADIATION THERAPY NO DOSE FORM [Suspect]
     Indication: GLIOBLASTOMA MULTIFORME
     Dosage: X-RAY THERAPY
     Dates: start: 20040712, end: 20040902
  3. DIAMOX [Concomitant]
  4. DIFLUCAN [Concomitant]
  5. KEPPRA [Concomitant]
  6. PROTONIX [Concomitant]
  7. DECADRON [Concomitant]
  8. K-DUR 10 [Concomitant]
  9. LEXAPRO [Concomitant]
  10. OS-CAL [Concomitant]
  11. COUMADIN [Concomitant]
  12. AMBIEN [Concomitant]
  13. MIRALAX [Concomitant]
  14. CARAFATE [Concomitant]

REACTIONS (10)
  - BONE MARROW DEPRESSION [None]
  - HAEMOGLOBIN DECREASED [None]
  - HAEMORRHAGE [None]
  - NERVOUS SYSTEM DISORDER [None]
  - PNEUMONIA [None]
  - SEPSIS [None]
  - THERAPY NON-RESPONDER [None]
  - THROMBOCYTOPENIA [None]
  - TUMOUR HAEMORRHAGE [None]
  - WHITE BLOOD CELL COUNT DECREASED [None]
